FAERS Safety Report 12771855 (Version 1)
Quarter: 2016Q3

REPORT INFORMATION
  Report Type: Spontaneous
  Country: US (occurrence: US)
  Receive Date: 20160922
  Receipt Date: 20160922
  Transmission Date: 20161109
  Serious: Yes (Other)
  Sender: FDA-Public Use
  Company Number: US-BAYER-2016-182508

PATIENT
  Sex: Female

DRUGS (1)
  1. CLARITIN-D 12 HOUR [Suspect]
     Active Substance: LORATADINE\PSEUDOEPHEDRINE SULFATE
     Dosage: UNK

REACTIONS (9)
  - Feeling hot [Not Recovered/Not Resolved]
  - Nasal dryness [Not Recovered/Not Resolved]
  - Headache [Recovering/Resolving]
  - Headache [Not Recovered/Not Resolved]
  - Rhinalgia [Not Recovered/Not Resolved]
  - Toothache [Unknown]
  - Pain in jaw [Unknown]
  - Eye haemorrhage [Unknown]
  - Pharyngeal disorder [Unknown]

NARRATIVE: CASE EVENT DATE: 20160916
